FAERS Safety Report 24675709 (Version 1)
Quarter: 2024Q4

REPORT INFORMATION
  Report Type: Spontaneous
  Country: CH (occurrence: CH)
  Receive Date: 20241128
  Receipt Date: 20241128
  Transmission Date: 20250115
  Serious: Yes (Hospitalization)
  Sender: TEVA
  Company Number: None

PATIENT
  Age: 83 Year
  Sex: Male

DRUGS (6)
  1. HYDROCHLOROTHIAZIDE\OLMESARTAN MEDOXOMIL [Suspect]
     Active Substance: HYDROCHLOROTHIAZIDE\OLMESARTAN MEDOXOMIL
     Indication: Hypertensive cardiomyopathy
     Dosage: THERAPY START DATE UNKNOWN (CHRONIC THERAPY), 1 DF = 40MG/25MG, OLMESARTAN HCT MEPHA
     Route: 048
     Dates: end: 20241021
  2. CARVEDILOL [Concomitant]
     Active Substance: CARVEDILOL
     Indication: Product used for unknown indication
     Route: 048
  3. PANTOPRAZOLE SODIUM [Concomitant]
     Active Substance: PANTOPRAZOLE SODIUM
     Indication: Product used for unknown indication
     Route: 048
  4. BACTRIM [Suspect]
     Active Substance: SULFAMETHOXAZOLE\TRIMETHOPRIM
     Indication: Antifungal prophylaxis
     Dosage: TIME INTERVAL: 0.33333333 WEEKS: 1 DF = 800/160 MG; DOSAGE: 1 TABLET 3 DAYS A WEEK
     Route: 048
     Dates: start: 20240809, end: 20241025
  5. PREDNISONE [Concomitant]
     Active Substance: PREDNISONE
     Indication: Organising pneumonia
     Route: 048
     Dates: start: 20240809
  6. ASPIRIN [Concomitant]
     Active Substance: ASPIRIN
     Indication: Product used for unknown indication
     Route: 048

REACTIONS (1)
  - Hyponatraemia [Recovering/Resolving]

NARRATIVE: CASE EVENT DATE: 20241021
